FAERS Safety Report 23987463 (Version 1)
Quarter: 2024Q2

REPORT INFORMATION
  Report Type: Spontaneous
  Country: KR (occurrence: KR)
  Receive Date: 20240618
  Receipt Date: 20240618
  Transmission Date: 20240716
  Serious: No
  Sender: FDA-Public Use
  Company Number: KR-WT-2024-APC-058988

PATIENT
  Sex: Male

DRUGS (1)
  1. AVODART [Suspect]
     Active Substance: DUTASTERIDE
     Indication: Androgenetic alopecia
     Route: 065

REACTIONS (2)
  - Decreased appetite [Unknown]
  - Product use in unapproved indication [Unknown]
